FAERS Safety Report 6101410-7 (Version None)
Quarter: 2009Q1

REPORT INFORMATION
  Report Type: 
  Country: None (occurrence: None)
  Receive Date: 20090304
  Receipt Date: 20090223
  Transmission Date: 20090719
  Serious: Yes (Hospitalization)
  Sender: FDA-Public Use
  Company Number: FR-AVENTIS-200910684FR

PATIENT
  Age: 12 Year
  Sex: Male

DRUGS (6)
  1. RIFADIN [Suspect]
     Route: 042
     Dates: start: 20090127, end: 20090204
  2. RIMIFON [Suspect]
     Route: 042
     Dates: start: 20090127, end: 20090204
  3. MYAMBUTOL [Suspect]
     Route: 048
     Dates: start: 20090127, end: 20090204
  4. ROCEPHIN [Concomitant]
     Indication: DRUG USE FOR UNKNOWN INDICATION
  5. CLAMOXYL                           /00249601/ [Concomitant]
     Indication: DRUG USE FOR UNKNOWN INDICATION
  6. SPASFON                            /00934601/ [Concomitant]
     Indication: DRUG USE FOR UNKNOWN INDICATION

REACTIONS (3)
  - ABDOMINAL PAIN [None]
  - BLOOD AMYLASE INCREASED [None]
  - PANCREATITIS [None]
